FAERS Safety Report 5904036-0 (Version None)
Quarter: 2008Q3

REPORT INFORMATION
  Report Type: 
  Country: None (occurrence: None)
  Receive Date: 20080919
  Receipt Date: 20080728
  Transmission Date: 20090109
  Serious: No
  Sender: FDA-Public Use
  Company Number: US-WYE-H05284108

PATIENT
  Age: 42 Year
  Sex: Female
  Weight: 88.53 kg

DRUGS (2)
  1. PRISTIQ [Suspect]
     Indication: DEPRESSION
     Dosage: 50 MG 1X PER 1 DAY ORAL
     Route: 048
     Dates: start: 20080725
  2. TRAZODONE HCL [Concomitant]

REACTIONS (1)
  - INSOMNIA [None]
